FAERS Safety Report 9028012 (Version 1)
Quarter: 2013Q1

REPORT INFORMATION
  Report Type: Spontaneous
  Country: US (occurrence: US)
  Receive Date: 20130123
  Receipt Date: 20130123
  Transmission Date: 20140127
  Serious: No
  Sender: FDA-Public Use
  Company Number: US-JNJFOC-20130107233

PATIENT
  Sex: Female

DRUGS (4)
  1. SANDOZ FENTANYL TRANSDERMAL SYSTEM [Suspect]
     Indication: NEOPLASM MALIGNANT
     Route: 062
     Dates: start: 2012
  2. SANDOZ FENTANYL TRANSDERMAL SYSTEM [Suspect]
     Indication: NEOPLASM MALIGNANT
     Route: 062
     Dates: end: 2012
  3. SANDOZ FENTANYL TRANSDERMAL SYSTEM [Suspect]
     Indication: HERPES ZOSTER
     Route: 062
     Dates: end: 2012
  4. SANDOZ FENTANYL TRANSDERMAL SYSTEM [Suspect]
     Indication: HERPES ZOSTER
     Route: 062
     Dates: start: 2012

REACTIONS (1)
  - Drug dose omission [Recovered/Resolved]
